FAERS Safety Report 8470357-3 (Version None)
Quarter: 2012Q2

REPORT INFORMATION
  Report Type: 
  Country: None (occurrence: None)
  Receive Date: 20120627
  Receipt Date: 20120619
  Transmission Date: 20120825
  Serious: Yes (Other)
  Sender: FDA-Public Use
  Company Number: US-BAYER-2012-050392

PATIENT
  Age: 31 Year
  Sex: Female
  Weight: 74.83 kg

DRUGS (9)
  1. BUPROPION HCL [Concomitant]
     Indication: DEPRESSION
     Dosage: 300 MG, QD
     Dates: start: 20110921, end: 20111011
  2. IBUPROFEN [Concomitant]
     Indication: PAIN
     Dosage: UNK
     Dates: end: 20111012
  3. ONDANSETRON HYDROCHLORIDE [Concomitant]
     Dosage: 8 MG, UNK
     Dates: start: 20110928
  4. DROSPIRENONE AND ETHINYL ESTRADIOL [Suspect]
     Indication: CONTRACEPTION
     Dosage: UNK
     Dates: start: 20050101, end: 20120101
  5. YASMIN [Suspect]
     Indication: CONTRACEPTION
     Dosage: UNK
     Dates: start: 20050101, end: 20120101
  6. L-LYSINE [Concomitant]
     Indication: MEDICAL DIET
     Dosage: UNK UNK, QD
  7. VENLAFAXINE [Concomitant]
     Indication: DEPRESSION
     Dosage: 112.5/ DAY
     Dates: start: 20110921, end: 20111011
  8. BUPROPION HCL [Concomitant]
     Dosage: 150 MG, UNK
     Dates: start: 20110921
  9. HYDROMORPHONE HCL [Concomitant]
     Dosage: 2 MG, UNK
     Dates: start: 20110928

REACTIONS (9)
  - PAIN [None]
  - PULMONARY EMBOLISM [None]
  - DEEP VEIN THROMBOSIS [None]
  - INJURY [None]
  - ANXIETY [None]
  - DEPRESSION [None]
  - GENERAL PHYSICAL HEALTH DETERIORATION [None]
  - ANHEDONIA [None]
  - EMOTIONAL DISTRESS [None]
